FAERS Safety Report 9946013 (Version 1)
Quarter: 2014Q1

REPORT INFORMATION
  Report Type: Spontaneous
  Country: US (occurrence: US)
  Receive Date: 20140303
  Receipt Date: 20140303
  Transmission Date: 20141002
  Serious: No
  Sender: FDA-Public Use
  Company Number: US-AMGEN-USASP2013072240

PATIENT
  Age: 58 Year
  Sex: Female
  Weight: 92.52 kg

DRUGS (9)
  1. ENBREL [Suspect]
     Indication: PSORIASIS
     Dosage: UNK
     Route: 065
     Dates: end: 2003
  2. BABY ASPIRIN [Concomitant]
     Dosage: UNK
  3. LISINOPRIL [Concomitant]
     Dosage: UNK
  4. MULTIVITAMINS, PLAIN [Concomitant]
     Dosage: UNK
  5. SIMVASTATIN [Concomitant]
     Dosage: UNK
  6. STELARA [Concomitant]
     Dosage: UNK
  7. VITAMIN D3 [Concomitant]
     Dosage: UNK
  8. ZOLPIDEM [Concomitant]
     Dosage: UNK
  9. VITAMIN B12                        /00056201/ [Concomitant]

REACTIONS (1)
  - Rash [Unknown]
